FAERS Safety Report 8853097 (Version 1)
Quarter: 2012Q4

REPORT INFORMATION
  Report Type: 
  Country: IT (occurrence: IT)
  Receive Date: 20121022
  Receipt Date: 20121022
  Transmission Date: 20130627
  Serious: Yes (Hospitalization)
  Sender: FDA-Public Use
  Company Number: IT-ROCHE-1144582

PATIENT
  Age: 43 Year
  Sex: Male

DRUGS (2)
  1. RIVOTRIL [Suspect]
     Indication: INTENTIONAL SELF-INJURY
     Route: 048
     Dates: start: 20120812, end: 20120812
  2. PARACETAMOL [Suspect]
     Indication: INTENTIONAL SELF-INJURY
     Route: 048
     Dates: start: 20120812, end: 20120812

REACTIONS (3)
  - Alcohol interaction [Unknown]
  - Overdose [Unknown]
  - Sopor [Unknown]
